FAERS Safety Report 15550014 (Version 1)
Quarter: 2018Q4

REPORT INFORMATION
  Report Type: Spontaneous
  Country: US (occurrence: US)
  Receive Date: 20181019
  Receipt Date: 20181019
  Transmission Date: 20190205
  Serious: No
  Sender: FDA-Public Use
  Company Number: None

PATIENT
  Age: 66 Year
  Sex: Female

DRUGS (1)
  1. CAPECITABINE TAB 500MG [Suspect]
     Active Substance: CAPECITABINE
     Dates: start: 20180802

REACTIONS (6)
  - Toothache [None]
  - Rash [None]
  - Gingival pain [None]
  - Headache [None]
  - Stomatitis [None]
  - Swollen tongue [None]

NARRATIVE: CASE EVENT DATE: 20180906
